FAERS Safety Report 4388338-8 (Version None)
Quarter: 2004Q3

REPORT INFORMATION
  Report Type: 
  Country: None (occurrence: None)
  Receive Date: 20040701
  Receipt Date: 20040611
  Transmission Date: 20050211
  Serious: Yes (Hospitalization)
  Sender: FDA-Public Use
  Company Number: JP-MERCK-0406USA01701

PATIENT
  Age: 51 Year
  Sex: Female

DRUGS (7)
  1. [THERAPY UNSPECIFIED] [Concomitant]
     Route: 065
     Dates: start: 20040607, end: 20040612
  2. CEFOTIAM HYDROCHLORIDE [Concomitant]
     Route: 042
     Dates: start: 20040513, end: 20040515
  3. RADICUT [Concomitant]
     Route: 042
     Dates: start: 20040512, end: 20040521
  4. PEPCID [Suspect]
     Indication: SUBARACHNOID HAEMORRHAGE
     Route: 048
     Dates: start: 20040518, end: 20040607
  5. PEPCID [Concomitant]
     Route: 042
     Dates: start: 20040512, end: 20040517
  6. ALEVIATIN [Suspect]
     Indication: SUBARACHNOID HAEMORRHAGE
     Route: 048
     Dates: start: 20040517, end: 20040607
  7. ALEVIATIN [Suspect]
     Route: 041
     Dates: start: 20040512, end: 20040517

REACTIONS (4)
  - GAMMA-GLUTAMYLTRANSFERASE INCREASED [None]
  - NEUTROPHIL COUNT DECREASED [None]
  - PYREXIA [None]
  - WHITE BLOOD CELL COUNT DECREASED [None]
